FAERS Safety Report 22622723 (Version 1)
Quarter: 2023Q2

REPORT INFORMATION
  Report Type: Spontaneous
  Country: HU (occurrence: None)
  Receive Date: 20230621
  Receipt Date: 20230621
  Transmission Date: 20230722
  Serious: Yes (Other)
  Sender: FDA-Public Use
  Company Number: HU-ROCHE-3369260

PATIENT
  Sex: Female

DRUGS (1)
  1. HERCEPTIN [Suspect]
     Active Substance: TRASTUZUMAB
     Indication: Breast neoplasm
     Dosage: 8TH CYCLE OF SC. HERCEPTIN
     Route: 058

REACTIONS (4)
  - Chemical cystitis [Unknown]
  - Urinary tract infection [Unknown]
  - Injection site discolouration [Unknown]
  - Periorbital haematoma [Unknown]
